FAERS Safety Report 24856379 (Version 2)
Quarter: 2025Q1

REPORT INFORMATION
  Report Type: Spontaneous
  Country: DE (occurrence: DE)
  Receive Date: 20250117
  Receipt Date: 20250210
  Transmission Date: 20250409
  Serious: Yes (Other)
  Sender: UCB
  Company Number: DE-UCBSA-2025002787

PATIENT

DRUGS (3)
  1. LEVETIRACETAM [Suspect]
     Active Substance: LEVETIRACETAM
     Indication: Occipital lobe epilepsy
  2. LACOSAMIDE [Suspect]
     Active Substance: LACOSAMIDE
     Indication: Occipital lobe epilepsy
  3. ETHOSUXIMIDE [Suspect]
     Active Substance: ETHOSUXIMIDE
     Indication: Product used for unknown indication

REACTIONS (7)
  - Suicidal ideation [Unknown]
  - Self-destructive behaviour [Unknown]
  - Delusional disorder, unspecified type [Unknown]
  - Depressive symptom [Unknown]
  - Back pain [Unknown]
  - Headache [Unknown]
  - Tinnitus [Unknown]
